FAERS Safety Report 6180247-7 (Version None)
Quarter: 2009Q2

REPORT INFORMATION
  Report Type: 
  Country: None (occurrence: None)
  Receive Date: 20090504
  Receipt Date: 20090420
  Transmission Date: 20091009
  Serious: Yes (Other)
  Sender: FDA-Public Use
  Company Number: 233583K09USA

PATIENT
  Age: 55 Year
  Sex: Female

DRUGS (8)
  1. REBIF [Suspect]
     Indication: MULTIPLE SCLEROSIS
     Dosage: 44 MCG, 3 IN 1 WEEKS, SUBCUTANEOUS, 22 MCG, 44 MCG, 3 IN 1 WEEKS
     Route: 058
     Dates: start: 20090101, end: 20090101
  2. REBIF [Suspect]
     Indication: MULTIPLE SCLEROSIS
     Dosage: 44 MCG, 3 IN 1 WEEKS, SUBCUTANEOUS, 22 MCG, 44 MCG, 3 IN 1 WEEKS
     Route: 058
     Dates: start: 20071221, end: 20090301
  3. REBIF [Suspect]
     Indication: MULTIPLE SCLEROSIS
     Dosage: 44 MCG, 3 IN 1 WEEKS, SUBCUTANEOUS, 22 MCG, 44 MCG, 3 IN 1 WEEKS
     Route: 058
     Dates: start: 20090101
  4. INDERAL [Concomitant]
  5. LIPITOR [Concomitant]
  6. PRILOSEC [Concomitant]
  7. PROVIGIL [Concomitant]
  8. IMITREX [Concomitant]

REACTIONS (3)
  - ANKLE FRACTURE [None]
  - COMPLEX REGIONAL PAIN SYNDROME [None]
  - FALL [None]
